FAERS Safety Report 13951637 (Version 1)
Quarter: 2017Q3

REPORT INFORMATION
  Report Type: Spontaneous
  Country: US (occurrence: US)
  Receive Date: 20170908
  Receipt Date: 20170908
  Transmission Date: 20171128
  Serious: No
  Sender: FDA-Public Use
  Company Number: US-HORIZON-PEN-0393-2017

PATIENT
  Sex: Male

DRUGS (1)
  1. PENNSAID [Suspect]
     Active Substance: DICLOFENAC SODIUM
     Indication: PAIN IN EXTREMITY
     Route: 061

REACTIONS (3)
  - Application site rash [Unknown]
  - Off label use [Unknown]
  - Application site pain [Unknown]
